FAERS Safety Report 5278048-7 (Version None)
Quarter: 2007Q1

REPORT INFORMATION
  Report Type: 
  Country: None (occurrence: None)
  Receive Date: 20070327
  Receipt Date: 20070308
  Transmission Date: 20070707
  Serious: Yes (Hospitalization)
  Sender: FDA-Public Use
  Company Number: BR-ELI_LILLY_AND_COMPANY-BR200612000014

PATIENT
  Age: 25 Year
  Sex: Male
  Weight: 83 kg

DRUGS (8)
  1. GEMZAR [Suspect]
     Indication: EXTRAGONADAL PRIMARY GERM CELL CANCER
     Dosage: 1000 MG/M2, OTHER
     Route: 042
     Dates: start: 20060929
  2. GEMZAR [Suspect]
     Dosage: UNK, OTHER
     Route: 042
     Dates: start: 20060929
  3. OXALIPLATIN [Concomitant]
     Indication: EXTRAGONADAL PRIMARY GERM CELL CANCER
     Dosage: 130 MG/M2, OTHER
     Route: 042
  4. KYTRIL [Concomitant]
     Dosage: UNK, UNKNOWN
     Route: 065
  5. ANTAK [Concomitant]
     Dosage: UNK, UNKNOWN
     Route: 065
  6. DEXAMETHASONE [Concomitant]
     Dosage: UNK, UNKNOWN
     Route: 065
  7. MAGNESIUM SULFATE [Concomitant]
     Dosage: UNK, UNKNOWN
     Route: 065
  8. GLUCONATO DE CALCIO [Concomitant]
     Dosage: UNK, UNKNOWN
     Route: 065

REACTIONS (2)
  - EPISTAXIS [None]
  - THROMBOCYTOPENIA [None]
